FAERS Safety Report 25586153 (Version 1)
Quarter: 2025Q3

REPORT INFORMATION
  Report Type: Spontaneous
  Country: US (occurrence: None)
  Receive Date: 20250719
  Receipt Date: 20250719
  Transmission Date: 20251021
  Serious: Yes (Life-Threatening, Hospitalization, Disabling, Other)
  Sender: FDA-CTU
  Company Number: None

PATIENT
  Age: 42 Year
  Sex: Female
  Weight: 85.5 kg

DRUGS (25)
  1. ZYPREXA [Suspect]
     Active Substance: OLANZAPINE
     Indication: Obesity
     Dates: end: 20250717
  2. Synthroid, [Concomitant]
  3. phentermine, [Concomitant]
  4. n acetylcystiene [Concomitant]
  5. PROBIOTICS NOS [Concomitant]
     Active Substance: PROBIOTICS NOS
  6. yaz, [Concomitant]
  7. spironolactone, [Concomitant]
  8. mutlivitamin, [Concomitant]
  9. magnesium, [Concomitant]
  10. vitamin d, [Concomitant]
  11. calcium, [Concomitant]
  12. zaleplon, [Concomitant]
  13. valium, [Concomitant]
  14. fiorcet, [Concomitant]
  15. VITAMIN B12 [Concomitant]
     Active Substance: CYANOCOBALAMIN
  16. GABAPENTIN [Concomitant]
     Active Substance: GABAPENTIN
  17. RAMELTEON [Concomitant]
     Active Substance: RAMELTEON
  18. MELATONIN [Concomitant]
     Active Substance: MELATONIN
  19. municprocen [Concomitant]
  20. ZOFRAN [Concomitant]
     Active Substance: ONDANSETRON HYDROCHLORIDE
  21. PAXIL [Concomitant]
     Active Substance: PAROXETINE HYDROCHLORIDE
  22. NURTEC ODT [Concomitant]
     Active Substance: RIMEGEPANT SULFATE
  23. TYLENOL [Concomitant]
     Active Substance: ACETAMINOPHEN
  24. PROTEIN [Concomitant]
     Active Substance: PROTEIN
  25. ASIAN GINSENG [Concomitant]
     Active Substance: ASIAN GINSENG

REACTIONS (4)
  - Weight increased [None]
  - Swelling [None]
  - Seizure [None]
  - Muscle twitching [None]

NARRATIVE: CASE EVENT DATE: 20250704
